FAERS Safety Report 5939647-X (Version None)
Quarter: 2008Q4

REPORT INFORMATION
  Report Type: 
  Country: None (occurrence: None)
  Receive Date: 20081030
  Receipt Date: 20081030
  Transmission Date: 20090506
  Serious: Yes (Other)
  Sender: FDA-Public Use
  Company Number: None

PATIENT
  Age: 52 Year
  Sex: Female
  Weight: 63.5036 kg

DRUGS (2)
  1. BUPIVACAINE [Suspect]
     Indication: BACK PAIN
     Dates: start: 20070402, end: 20080331
  2. BUPIVACAINE [Suspect]
     Indication: INTERVERTEBRAL DISC DISORDER
     Dates: start: 20070402, end: 20080331

REACTIONS (13)
  - ANXIETY [None]
  - CONSTIPATION [None]
  - DIZZINESS [None]
  - DYSURIA [None]
  - FEAR [None]
  - GAIT DISTURBANCE [None]
  - HEADACHE [None]
  - INSOMNIA [None]
  - MUSCULAR WEAKNESS [None]
  - OEDEMA [None]
  - OEDEMA PERIPHERAL [None]
  - RESTLESSNESS [None]
  - VISION BLURRED [None]
